FAERS Safety Report 6552303-2 (Version None)
Quarter: 2010Q1

REPORT INFORMATION
  Report Type: 
  Country: None (occurrence: None)
  Receive Date: 20100126
  Receipt Date: 20100111
  Transmission Date: 20100710
  Serious: No
  Sender: FDA-Public Use
  Company Number: US-ELI_LILLY_AND_COMPANY-US201001002131

PATIENT
  Sex: Female

DRUGS (9)
  1. CYMBALTA [Suspect]
     Indication: ARTHRALGIA
     Dosage: 30 MG, QOD
     Route: 048
     Dates: start: 20091101, end: 20100101
  2. CYMBALTA [Suspect]
     Dosage: 20 MG, DAILY (1/D)
     Route: 048
     Dates: start: 20100105, end: 20100110
  3. IBUPROFEN [Concomitant]
     Indication: ARTHRALGIA
     Dosage: UNK, EACH MORNING
  4. TYLENOL (CAPLET) [Concomitant]
     Indication: ARTHRALGIA
     Dosage: UNK, EACH MORNING
  5. COUMADIN [Concomitant]
     Indication: HEART RATE IRREGULAR
     Dosage: 0.5 MG, UNK
  6. DILTIAZEM [Concomitant]
     Dosage: 90 MG, 2/D
  7. DIGOXIN [Concomitant]
     Dosage: 0.215 MG, DAILY (1/D)
     Route: 048
  8. CIMETIDINE [Concomitant]
     Dosage: 800 MG, DAILY (1/D)
  9. FUROSEMIDE [Concomitant]
     Dosage: 20 MG, DAILY (1/D)
     Route: 048

REACTIONS (14)
  - ABDOMINAL PAIN UPPER [None]
  - ASTHENIA [None]
  - BALANCE DISORDER [None]
  - DIARRHOEA [None]
  - DIZZINESS [None]
  - DRUG LEVEL FLUCTUATING [None]
  - DRY MOUTH [None]
  - FATIGUE [None]
  - FEELING ABNORMAL [None]
  - HEADACHE [None]
  - INSOMNIA [None]
  - INTERNATIONAL NORMALISED RATIO INCREASED [None]
  - OFF LABEL USE [None]
  - SOMNOLENCE [None]
